FAERS Safety Report 9093479 (Version 4)
Quarter: 2013Q2

REPORT INFORMATION
  Report Type: Report from Study
  Country: BR (occurrence: BR)
  Receive Date: 20130131
  Receipt Date: 20130611
  Transmission Date: 20140414
  Serious: Yes (Hospitalization, Other)
  Sender: FDA-Public Use
  Company Number: BR-ABBOTT-13P-020-1042868-00

PATIENT
  Age: 44 Year
  Sex: Female
  Weight: 62 kg

DRUGS (7)
  1. HUMIRA [Suspect]
     Indication: RHEUMATOID ARTHRITIS
     Route: 058
     Dates: end: 201303
  2. HUMIRA [Suspect]
  3. METICORTEN [Concomitant]
     Indication: DRUG THERAPY ENHANCEMENT
     Route: 048
  4. METHOTREXATE [Concomitant]
     Indication: DRUG THERAPY ENHANCEMENT
     Route: 048
  5. ALGENACNIL [Concomitant]
     Indication: PRODUCT USED FOR UNKNOWN INDICATION
  6. OMEPRAZOLE [Concomitant]
     Indication: PRODUCT USED FOR UNKNOWN INDICATION
  7. NEO FOLICO [Concomitant]
     Indication: DRUG THERAPY ENHANCEMENT
     Route: 048
     Dates: start: 20130517

REACTIONS (9)
  - Pyrexia [Unknown]
  - Nephrolithiasis [Recovering/Resolving]
  - Infection [Recovered/Resolved]
  - Feeling hot [Unknown]
  - Erythema [Unknown]
  - Blood pressure increased [Unknown]
  - Influenza [Not Recovered/Not Resolved]
  - Weight decreased [Unknown]
  - Chondropathy [Unknown]
